FAERS Safety Report 23779773 (Version 1)
Quarter: 2024Q2

REPORT INFORMATION
  Report Type: Spontaneous
  Country: US (occurrence: None)
  Receive Date: 20240424
  Receipt Date: 20240424
  Transmission Date: 20240716
  Serious: Yes (Life-Threatening, Hospitalization)
  Sender: FDA-Public Use
  Company Number: None

PATIENT
  Age: 72 Year
  Sex: Male

DRUGS (1)
  1. IRON SUCROSE [Suspect]
     Active Substance: IRON SUCROSE
     Dosage: FREQUENCY : ONCE;?
     Route: 042
     Dates: start: 202306, end: 20230612

REACTIONS (8)
  - Urticaria [None]
  - Hypotension [None]
  - Vomiting [None]
  - Infusion site rash [None]
  - Rash [None]
  - Paraesthesia [None]
  - Chest pain [None]
  - Chest discomfort [None]

NARRATIVE: CASE EVENT DATE: 20230611
